FAERS Safety Report 23153325 (Version 1)
Quarter: 2023Q4

REPORT INFORMATION
  Report Type: Spontaneous
  Country: ME (occurrence: ME)
  Receive Date: 20231107
  Receipt Date: 20231107
  Transmission Date: 20240110
  Serious: Yes (Death)
  Sender: FDA-Public Use
  Company Number: ME-TAKEDA-2023TUS107926

PATIENT
  Age: 73 Year
  Sex: Male
  Weight: 91 kg

DRUGS (2)
  1. ENTYVIO [Suspect]
     Active Substance: VEDOLIZUMAB
     Indication: Colitis ulcerative
     Dosage: 300 MILLIGRAM
     Route: 042
     Dates: start: 20211224, end: 20230316
  2. Salofalk [Concomitant]
     Indication: Colitis ulcerative
     Dosage: 3 GRAM
     Route: 048
     Dates: start: 20211224, end: 20230316

REACTIONS (1)
  - Cardiac disorder [Fatal]
